FAERS Safety Report 4466298-9 (Version None)
Quarter: 2004Q4

REPORT INFORMATION
  Report Type: 
  Country: None (occurrence: None)
  Receive Date: 20041001
  Receipt Date: 20040922
  Transmission Date: 20050328
  Serious: No
  Sender: FDA-Public Use
  Company Number: 2004UW07157

PATIENT
  Age: 88 Year
  Sex: Female
  Weight: 61.2356 kg

DRUGS (9)
  1. CRESTOR [Suspect]
     Indication: HYPERCHOLESTEROLAEMIA
     Dosage: 10 MG DAILY PO
     Route: 048
     Dates: start: 20040319, end: 20040803
  2. CRESTOR [Suspect]
     Indication: HYPERCHOLESTEROLAEMIA
     Dosage: 10 MG QD PO
     Route: 048
     Dates: start: 20040820, end: 20040828
  3. HCT [Concomitant]
  4. ATENOLOL [Concomitant]
  5. ASPIRIN [Concomitant]
  6. PANTOPRAZOLE SODIUM [Concomitant]
  7. MICARDIS [Concomitant]
  8. LEVOTHYROXINE SODIUM [Concomitant]
  9. ALLOPURINOL [Concomitant]

REACTIONS (6)
  - CONDITION AGGRAVATED [None]
  - GOUT [None]
  - HYPOAESTHESIA [None]
  - INTERMITTENT CLAUDICATION [None]
  - OEDEMA PERIPHERAL [None]
  - PARAESTHESIA [None]
